FAERS Safety Report 4783007-4 (Version None)
Quarter: 2005Q3

REPORT INFORMATION
  Report Type: 
  Country: None (occurrence: None)
  Receive Date: 20050927
  Receipt Date: 20050912
  Transmission Date: 20060218
  Serious: Yes (Hospitalization)
  Sender: FDA-Public Use
  Company Number: US_0509121763

PATIENT
  Age: 72 Year
  Sex: Male

DRUGS (3)
  1. QUINIDINE GLUCONATE [Suspect]
     Indication: ATRIAL FIBRILLATION
     Dosage: 648 MG/3 DAY
  2. COUMADIN [Concomitant]
  3. ATENOLOL [Concomitant]

REACTIONS (10)
  - ACHLORHYDRIA [None]
  - ATROPHY [None]
  - BLOOD PRESSURE DIASTOLIC DECREASED [None]
  - GASTRIC ULCER [None]
  - GASTRITIS [None]
  - GASTROINTESTINAL DISORDER [None]
  - HEART RATE DECREASED [None]
  - METAPLASIA [None]
  - MUCOUS MEMBRANE DISORDER [None]
  - WEIGHT DECREASED [None]
